FAERS Safety Report 5986438-X (Version None)
Quarter: 2008Q4

REPORT INFORMATION
  Report Type: 
  Country: None (occurrence: None)
  Receive Date: 20081209
  Receipt Date: 20081203
  Transmission Date: 20090506
  Serious: Yes (Hospitalization)
  Sender: FDA-Public Use
  Company Number: DE-BIOGENIDEC-2008BI032484

PATIENT
  Age: 55 Year
  Sex: Female

DRUGS (5)
  1. TYSABRI [Suspect]
     Indication: MULTIPLE SCLEROSIS
     Route: 042
     Dates: start: 20070214
  2. ANTIHYPERTENSIVES [Concomitant]
     Indication: HYPERTENSION
  3. NSAIDS [Concomitant]
  4. ACETAMINOPHEN [Concomitant]
  5. DIABETES MEDICATIONS [Concomitant]
     Indication: DIABETES MELLITUS

REACTIONS (1)
  - LUMBAR SPINAL STENOSIS [None]
